FAERS Safety Report 4985049-2 (Version None)
Quarter: 2006Q2

REPORT INFORMATION
  Report Type: 
  Country: None (occurrence: None)
  Receive Date: 20060421
  Receipt Date: 20060407
  Transmission Date: 20061013
  Serious: Yes (Hospitalization)
  Sender: FDA-Public Use
  Company Number: 224102

PATIENT
  Age: 62 Year
  Sex: Male

DRUGS (8)
  1. BEVACIZUMAB OR PLACEBO (BEVACIZUMAB) PWDR + SOLVENT, INFUSION SOLN, 10 [Suspect]
     Indication: NON-SMALL CELL LUNG CANCER
     Dosage: UNK, Q3W; INTRAVENOUS
     Route: 042
     Dates: start: 20060109
  2. CISPLATIN [Suspect]
     Indication: NON-SMALL CELL LUNG CANCER
     Dosage: 80 MG/M2, Q3W; INTRAVENOUS
     Route: 042
     Dates: start: 20060109
  3. GEMCITABINE [Suspect]
     Indication: NON-SMALL CELL LUNG CANCER
     Dosage: 1250 MG/M2, UNK; INTRAVENOUS
     Route: 042
     Dates: start: 20060109
  4. OXYCODONE [Concomitant]
  5. METHYLPREDNISOLONE 4MG TAB [Concomitant]
  6. ONDANSETRON HCL [Concomitant]
  7. EMEND [Concomitant]
  8. NEURONTIN [Concomitant]

REACTIONS (1)
  - INTERVERTEBRAL DISC COMPRESSION [None]
